FAERS Safety Report 17746053 (Version 2)
Quarter: 2020Q3

REPORT INFORMATION
  Report Type: Spontaneous
  Country: US (occurrence: US)
  Receive Date: 20200505
  Receipt Date: 20200805
  Transmission Date: 20201102
  Serious: Yes (Other)
  Sender: FDA-Public Use
  Company Number: US-PFIZER INC-2020178557

PATIENT
  Age: 60 Year
  Sex: Female

DRUGS (1)
  1. LYRICA [Suspect]
     Active Substance: PREGABALIN
     Dosage: UNK

REACTIONS (7)
  - Cough [Unknown]
  - Lupus-like syndrome [Unknown]
  - Fibromyalgia [Unknown]
  - Hypersensitivity [Unknown]
  - Wheezing [Unknown]
  - Multiple sclerosis [Unknown]
  - Asthma [Unknown]
